FAERS Safety Report 6855978-3 (Version None)
Quarter: 2010Q3

REPORT INFORMATION
  Report Type: 
  Country: None (occurrence: None)
  Receive Date: 20100716
  Receipt Date: 20100716
  Transmission Date: 20110219
  Serious: Yes (Disabling, Other)
  Sender: FDA-Public Use
  Company Number: None

PATIENT
  Age: 84 Year
  Sex: Female
  Weight: 44.9061 kg

DRUGS (1)
  1. CELESTONE [Suspect]
     Indication: ASPIRATION JOINT
     Dates: start: 20091210

REACTIONS (1)
  - NO ADVERSE EVENT [None]
